FAERS Safety Report 15715444 (Version 2)
Quarter: 2019Q2

REPORT INFORMATION
  Report Type: Report from Study
  Country: US (occurrence: US)
  Receive Date: 20181212
  Receipt Date: 20190424
  Transmission Date: 20190711
  Serious: Yes (Hospitalization)
  Sender: FDA-Public Use
  Company Number: US-ACTELION-A-NJ2017-151525

PATIENT
  Age: 5 Year
  Sex: Female

DRUGS (4)
  1. MULTIVITAMIN [Concomitant]
     Active Substance: VITAMINS
     Dosage: 1 TABLET, QD
     Route: 048
     Dates: start: 20170214
  2. ZAVESCA [Suspect]
     Active Substance: MIGLUSTAT
     Indication: GAUCHER^S DISEASE
     Dosage: 100 MG, QD
     Route: 048
     Dates: start: 20170215
  3. ZAVESCA [Suspect]
     Active Substance: MIGLUSTAT
     Dosage: 100 MG, BID
     Route: 048
  4. VPRIV [Concomitant]
     Active Substance: VELAGLUCERASE ALFA
     Dosage: 400 U, TWICE A MONTH
     Route: 042
     Dates: start: 20170214

REACTIONS (7)
  - Vomiting [Unknown]
  - Dysphagia [Unknown]
  - Inappropriate schedule of product administration [Unknown]
  - Flatulence [Unknown]
  - Seizure [Unknown]
  - Lower limb fracture [Unknown]
  - Abdominal pain upper [Unknown]

NARRATIVE: CASE EVENT DATE: 20190316
